FAERS Safety Report 4363999-8 (Version None)
Quarter: 2004Q2

REPORT INFORMATION
  Report Type: 
  Country: None (occurrence: None)
  Receive Date: 20040519
  Receipt Date: 20040409
  Transmission Date: 20050107
  Serious: Yes (Hospitalization)
  Sender: FDA-Public Use
  Company Number: 2004AP01200

PATIENT
  Age: 66 Year
  Sex: Male

DRUGS (16)
  1. IRESSA [Suspect]
     Indication: NON-SMALL CELL LUNG CANCER
     Dosage: 250 MG DAILY PO
     Route: 048
     Dates: start: 20040203, end: 20040224
  2. IRESSA [Suspect]
     Indication: NON-SMALL CELL LUNG CANCER
     Dosage: 250 MG DAILY PO
     Route: 048
     Dates: start: 20040312, end: 20040325
  3. PURSENNID [Suspect]
     Indication: CONSTIPATION
  4. CODEINE PHOSPHATE [Concomitant]
  5. LOXONIN [Concomitant]
  6. SELBEX [Concomitant]
  7. GASTER [Concomitant]
  8. CLEANAL [Concomitant]
  9. MAGNESIUM OXIDE [Concomitant]
  10. PREDONINE [Concomitant]
  11. MUCOSAL [Concomitant]
  12. ADONA (AC-17) [Concomitant]
  13. TRANSAMIN [Concomitant]
  14. LAXOBERON [Concomitant]
  15. ISODINE [Concomitant]
  16. KADIAN ^KNOLL^ [Concomitant]

REACTIONS (12)
  - ANXIETY [None]
  - BLOOD BETA-D-GLUCAN INCREASED [None]
  - BLOOD UREA INCREASED [None]
  - DEHYDRATION [None]
  - DRUG INEFFECTIVE [None]
  - ERYTHEMA [None]
  - HAEMOPTYSIS [None]
  - HICCUPS [None]
  - PNEUMOCOCCAL INFECTION [None]
  - PNEUMOCYSTIS CARINII PNEUMONIA [None]
  - RASH [None]
  - SPUTUM CULTURE POSITIVE [None]
